FAERS Safety Report 19584556 (Version 3)
Quarter: 2023Q4

REPORT INFORMATION
  Report Type: Spontaneous
  Country: US (occurrence: US)
  Receive Date: 20210720
  Receipt Date: 20231026
  Transmission Date: 20240110
  Serious: Yes (Other)
  Sender: FDA-Public Use
  Company Number: US-GILEAD-2021-0541224

PATIENT
  Age: 42 Year
  Sex: Male
  Weight: 85.729 kg

DRUGS (63)
  1. TRUVADA [Suspect]
     Active Substance: EMTRICITABINE\TENOFOVIR DISOPROXIL FUMARATE
     Indication: HIV infection
     Dosage: UNK
     Route: 048
     Dates: start: 20110307, end: 2014
  2. TRUVADA [Suspect]
     Active Substance: EMTRICITABINE\TENOFOVIR DISOPROXIL FUMARATE
     Dosage: UNK
     Route: 048
     Dates: start: 20100802, end: 20101031
  3. TRUVADA [Suspect]
     Active Substance: EMTRICITABINE\TENOFOVIR DISOPROXIL FUMARATE
     Dosage: UNK
     Route: 048
     Dates: start: 2014
  4. TRUVADA [Suspect]
     Active Substance: EMTRICITABINE\TENOFOVIR DISOPROXIL FUMARATE
     Dosage: UNK
     Route: 048
     Dates: start: 2014, end: 2014
  5. TRUVADA [Suspect]
     Active Substance: EMTRICITABINE\TENOFOVIR DISOPROXIL FUMARATE
     Dosage: UNK
     Route: 048
     Dates: start: 201008, end: 2017
  6. DESCOVY [Concomitant]
     Active Substance: EMTRICITABINE\TENOFOVIR ALAFENAMIDE FUMARATE
  7. EPZICOM [Concomitant]
     Active Substance: ABACAVIR SULFATE\LAMIVUDINE
  8. EVOTAZ [Concomitant]
     Active Substance: ATAZANAVIR SULFATE\COBICISTAT
  9. ISENTRESS [Concomitant]
     Active Substance: RALTEGRAVIR POTASSIUM
  10. NORVIR [Concomitant]
     Active Substance: RITONAVIR
  11. PIFELTRO [Concomitant]
     Active Substance: DORAVIRINE
  12. PREZCOBIX [Concomitant]
     Active Substance: COBICISTAT\DARUNAVIR ETHANOLATE
  13. PREZISTA [Concomitant]
     Active Substance: DARUNAVIR ETHANOLATE
  14. REYATAZ [Concomitant]
     Active Substance: ATAZANAVIR SULFATE
  15. TIVICAY [Concomitant]
     Active Substance: DOLUTEGRAVIR SODIUM
  16. ZIAGEN [Concomitant]
     Active Substance: ABACAVIR SULFATE
  17. ACETAMINOPHEN [Concomitant]
     Active Substance: ACETAMINOPHEN
  18. ACYCLOVIR [Concomitant]
     Active Substance: ACYCLOVIR
  19. AMITIZA [Concomitant]
     Active Substance: LUBIPROSTONE
  20. AZITHROMYCIN [Concomitant]
     Active Substance: AZITHROMYCIN
  21. BACLOFEN [Concomitant]
     Active Substance: BACLOFEN
  22. CALCITRIOL [Concomitant]
     Active Substance: CALCITRIOL
  23. CARVEDILOL [Concomitant]
     Active Substance: CARVEDILOL
  24. CEPHALEXIN [Concomitant]
     Active Substance: CEPHALEXIN
  25. CETIRIZINE [Concomitant]
     Active Substance: CETIRIZINE HYDROCHLORIDE
  26. CIPROFLOXACIN [Concomitant]
     Active Substance: CIPROFLOXACIN
  27. CLINDAMYCIN [Concomitant]
     Active Substance: CLINDAMYCIN
  28. CYCLOBENZAPRINE [Concomitant]
     Active Substance: CYCLOBENZAPRINE
  29. DESOXIMETASONE [Concomitant]
     Active Substance: DESOXIMETASONE
  30. DEXILANT [Concomitant]
     Active Substance: DEXLANSOPRAZOLE
  31. ALUMINUM HYDROXIDE\DICYCLOMINE HYDROCHLORIDE\MAGNESIUM OXIDE [Concomitant]
     Active Substance: ALUMINUM HYDROXIDE\DICYCLOMINE HYDROCHLORIDE\MAGNESIUM OXIDE
  32. DOCQLACE [Concomitant]
     Active Substance: DOCUSATE SODIUM
  33. DOCUSATE [Concomitant]
     Active Substance: DOCUSATE
  34. DOK [Concomitant]
     Active Substance: DOCUSATE SODIUM
  35. DOXYCYCLINE [Concomitant]
     Active Substance: DOXYCYCLINE
  36. ESCITALOPRAM [Concomitant]
     Active Substance: ESCITALOPRAM OXALATE
  37. ETODOLAC [Concomitant]
     Active Substance: ETODOLAC
  38. FUROSEMIDE [Concomitant]
     Active Substance: FUROSEMIDE
  39. FLUCONAZOLE [Concomitant]
     Active Substance: FLUCONAZOLE
  40. GABAPENTIN [Concomitant]
     Active Substance: GABAPENTIN
  41. HYDROCHLOROTHIAZIDE [Concomitant]
     Active Substance: HYDROCHLOROTHIAZIDE
  42. HYDROCODONE [Concomitant]
     Active Substance: HYDROCODONE
  43. IPRATROPIUM [Concomitant]
     Active Substance: IPRATROPIUM
  44. LAMICTAL [Concomitant]
     Active Substance: LAMOTRIGINE
  45. LEVOTHYROXINE [Concomitant]
     Active Substance: LEVOTHYROXINE
  46. LIDOCAINE [Concomitant]
     Active Substance: LIDOCAINE
  47. LISINOPRIL [Concomitant]
     Active Substance: LISINOPRIL
  48. LOSARTAN [Concomitant]
     Active Substance: LOSARTAN
  49. LYRICA [Concomitant]
     Active Substance: PREGABALIN
  50. METHOCARBAMOL [Concomitant]
     Active Substance: METHOCARBAMOL
  51. METOPROLOL [Concomitant]
     Active Substance: METOPROLOL
  52. NITROFURANTOIN [Concomitant]
     Active Substance: NITROFURANTOIN
  53. NORTRIPTYLINE [Concomitant]
     Active Substance: NORTRIPTYLINE
  54. NYSTATIN [Concomitant]
     Active Substance: NYSTATIN
  55. OMEPRAZOLE [Concomitant]
     Active Substance: OMEPRAZOLE
  56. ONDANSETRON [Concomitant]
     Active Substance: ONDANSETRON
  57. OSELTAMIVIR [Concomitant]
     Active Substance: OSELTAMIVIR
  58. OXYCODONE [Concomitant]
     Active Substance: OXYCODONE
  59. RANITIDINE [Concomitant]
     Active Substance: RANITIDINE
  60. SUDAFED NASAL DECONGESTANT MAXIMUM STRENGTH [Concomitant]
     Active Substance: PSEUDOEPHEDRINE HYDROCHLORIDE
  61. TIROSINT [Concomitant]
     Active Substance: LEVOTHYROXINE SODIUM
  62. TIZANIDINE [Concomitant]
     Active Substance: TIZANIDINE
  63. HARVONI [Concomitant]
     Active Substance: LEDIPASVIR\SOFOSBUVIR

REACTIONS (12)
  - Osteoporosis [Not Recovered/Not Resolved]
  - Chronic kidney disease [Not Recovered/Not Resolved]
  - Renal impairment [Not Recovered/Not Resolved]
  - Bone density decreased [Unknown]
  - Emotional distress [Not Recovered/Not Resolved]
  - Anxiety [Not Recovered/Not Resolved]
  - Anhedonia [Not Recovered/Not Resolved]
  - Pain [Not Recovered/Not Resolved]
  - Proteinuria [Not Recovered/Not Resolved]
  - Anaemia [Not Recovered/Not Resolved]
  - Loss of personal independence in daily activities [Unknown]
  - Hypertension [Not Recovered/Not Resolved]

NARRATIVE: CASE EVENT DATE: 20110301
